FAERS Safety Report 13470634 (Version 1)
Quarter: 2017Q2

REPORT INFORMATION
  Report Type: Spontaneous
  Country: US (occurrence: US)
  Receive Date: 20170424
  Receipt Date: 20170424
  Transmission Date: 20170830
  Serious: Yes (Death, Hospitalization, Other)
  Sender: FDA-Public Use
  Company Number: US-ENDO PHARMACEUTICALS INC-2017-002198

PATIENT
  Age: 81 Year
  Sex: Female

DRUGS (1)
  1. RHEUMATREX [Suspect]
     Active Substance: METHOTREXATE SODIUM
     Indication: ARTHRITIS
     Dosage: 12.5 MG, DAILY
     Route: 048

REACTIONS (14)
  - Cardio-respiratory arrest [Fatal]
  - Diarrhoea [Unknown]
  - Platelet count decreased [Unknown]
  - White blood cell count decreased [Unknown]
  - Lip ulceration [Unknown]
  - Inappropriate schedule of drug administration [Fatal]
  - Urinary incontinence [Unknown]
  - Dysphagia [Unknown]
  - Oropharyngeal pain [Unknown]
  - Pulse absent [Unknown]
  - Seizure [Unknown]
  - Unresponsive to stimuli [Unknown]
  - Mouth ulceration [Unknown]
  - Staphylococcus test positive [Unknown]
